FAERS Safety Report 6696297-8 (Version None)
Quarter: 2010Q2

REPORT INFORMATION
  Report Type: 
  Country: None (occurrence: None)
  Receive Date: 20100426
  Receipt Date: 20100421
  Transmission Date: 20101027
  Serious: Yes (Other)
  Sender: FDA-Public Use
  Company Number: JP-BAYER-200914669BYL

PATIENT
  Age: 76 Year
  Sex: Male
  Weight: 45 kg

DRUGS (10)
  1. NEXAVAR [Suspect]
     Indication: RENAL CELL CARCINOMA
     Dosage: TOTAL DAILY DOSE: 400 MG  UNIT DOSE: 200 MG
     Route: 048
     Dates: start: 20090915, end: 20100112
  2. NEXAVAR [Suspect]
     Dosage: TOTAL DAILY DOSE: 400 MG  UNIT DOSE: 200 MG
     Route: 048
     Dates: start: 20100113
  3. SUMIFERON DS [Suspect]
     Indication: DRUG USE FOR UNKNOWN INDICATION
     Dosage: TOTAL DAILY DOSE: 6 MIU
     Route: 058
  4. TAKEPRON [Concomitant]
     Dosage: UNIT DOSE: 15 MG
     Route: 048
  5. ALLOPURINOL [Concomitant]
     Dosage: UNIT DOSE: 100 MG
     Route: 048
  6. LOXONIN [Concomitant]
     Dosage: UNIT DOSE: 60 MG
     Route: 048
  7. MUCOSTA [Concomitant]
     Dosage: UNIT DOSE: 100 MG
     Route: 048
  8. AMOBAN [Concomitant]
     Dosage: UNIT DOSE: 7.5 MG
     Route: 048
  9. EPOGIN INJ. 6000 [Concomitant]
     Route: 058
  10. PRECIPITATED CALCIUM CARBONATE [Concomitant]
     Dosage: UNIT DOSE: 500 MG
     Route: 048
     Dates: start: 20091028

REACTIONS (10)
  - CONSTIPATION [None]
  - DEPRESSION [None]
  - DIARRHOEA [None]
  - PALMAR-PLANTAR ERYTHRODYSAESTHESIA SYNDROME [None]
  - PERICARDIAL EFFUSION [None]
  - PLATELET COUNT DECREASED [None]
  - PLEURAL EFFUSION [None]
  - PRURITUS GENERALISED [None]
  - PYREXIA [None]
  - RASH [None]
